FAERS Safety Report 24287780 (Version 1)
Quarter: 2024Q3

REPORT INFORMATION
  Report Type: Spontaneous
  Country: DE (occurrence: DE)
  Receive Date: 20240905
  Receipt Date: 20240905
  Transmission Date: 20241017
  Serious: Yes (Other)
  Sender: SANDOZ
  Company Number: DE-BAXTER-2021BAX004875

PATIENT
  Age: 18 Year
  Sex: Male

DRUGS (14)
  1. ADRIAMYCIN [Suspect]
     Active Substance: DOXORUBICIN HYDROCHLORIDE
     Indication: Burkitt^s lymphoma
     Dosage: AFTER AT LEAST 14 DAYS (BLOCK B)
     Route: 042
  2. CYTARABINE [Suspect]
     Active Substance: CYTARABINE
     Indication: Burkitt^s lymphoma
     Dosage: OVER 1 H (BLOCK A)
     Route: 042
  3. CYCLOPHOSPHAMIDE [Suspect]
     Active Substance: CYCLOPHOSPHAMIDE
     Dosage: PRELIMINARY PHASE (FACULTATIVE) FOR 1-5 DAYS
     Route: 065
  4. CYCLOPHOSPHAMIDE [Suspect]
     Active Substance: CYCLOPHOSPHAMIDE
     Dosage: FOR 1-5 DAYS, AFTER AT LEAST 14 DAYS (BLOCK B)
     Route: 065
  5. CYCLOPHOSPHAMIDE [Suspect]
     Active Substance: CYCLOPHOSPHAMIDE
     Indication: Burkitt^s lymphoma
     Dosage: INTRAVENOUSLY OR ORALLY DIRECTLY AFTERWARD (BLOCK A) ON 1-5 DAYS
     Route: 065
  6. METHOTREXATE [Suspect]
     Active Substance: METHOTREXATE
     Dosage: BLOCK A
     Route: 037
  7. METHOTREXATE [Suspect]
     Active Substance: METHOTREXATE
     Dosage: AFTER AT LEAST 14 DAYS (BLOCK B)
     Route: 037
  8. METHOTREXATE [Suspect]
     Active Substance: METHOTREXATE
     Dosage: AFTER AT LEAST 14 DAYS, OVER 24 H
     Route: 042
  9. METHOTREXATE [Suspect]
     Active Substance: METHOTREXATE
     Dosage: OVER 24 H (BLOCK A)
     Route: 042
  10. METHOTREXATE [Suspect]
     Active Substance: METHOTREXATE
     Indication: Burkitt^s lymphoma
     Dosage: AFTER AT LEAST 14 DAYS, BOLUS (BLOCK B)
     Route: 042
  11. METHOTREXATE [Suspect]
     Active Substance: METHOTREXATE
     Dosage: INTRAVENOUSLY AS BOLUS (BLOCK A)
     Route: 042
  12. PREDNISONE [Suspect]
     Active Substance: PREDNISONE
     Indication: Burkitt^s lymphoma
     Dosage: 0.5-1 MG/KG, ON DAYS 1-5 AS PRELIMINARY PHASE (FACULTATIVE)
     Route: 048
  13. TENIPOSIDE [Suspect]
     Active Substance: TENIPOSIDE
     Indication: Burkitt^s lymphoma
     Dosage: OVER 1 H (BLOCK A)
     Route: 042
  14. LEUCOVORIN [Concomitant]
     Active Substance: LEUCOVORIN\LEUCOVORIN CALCIUM
     Indication: Prophylaxis
     Dosage: 30 MG EACH 36, 42, 48, 54, 60, AND 66 H AFTER THE METHOTREXATE INFUSION
     Route: 065

REACTIONS (3)
  - Anaemia [Unknown]
  - Alopecia [Unknown]
  - Leukopenia [Unknown]
